FAERS Safety Report 25061689 (Version 1)
Quarter: 2025Q1

REPORT INFORMATION
  Report Type: Spontaneous
  Country: FR (occurrence: FR)
  Receive Date: 20250311
  Receipt Date: 20250311
  Transmission Date: 20250409
  Serious: Yes (Other)
  Sender: UCB
  Company Number: None

PATIENT
  Age: 24 Year
  Sex: Female

DRUGS (8)
  1. CIMZIA [Suspect]
     Active Substance: CERTOLIZUMAB PEGOL
     Indication: Still^s disease
     Dosage: 400 MILLIGRAM, EV 2 WEEKS(QOW)
     Route: 058
     Dates: start: 20200505, end: 20200602
  2. CIMZIA [Suspect]
     Active Substance: CERTOLIZUMAB PEGOL
     Dosage: 200 MILLIGRAM, EV 2 WEEKS(QOW)
     Route: 058
     Dates: start: 20200602
  3. METHOTREXATE SODIUM [Concomitant]
     Active Substance: METHOTREXATE SODIUM
     Indication: Still^s disease
     Route: 048
     Dates: start: 202004, end: 20200505
  4. TOCILIZUMAB [Concomitant]
     Active Substance: TOCILIZUMAB
     Indication: Still^s disease
     Dosage: 8 MILLIGRAM/KILOGRAM, EV 4 WEEKS
     Route: 042
     Dates: start: 202004, end: 20200409
  5. INFLIXIMAB [Concomitant]
     Active Substance: INFLIXIMAB
     Indication: Still^s disease
     Route: 042
     Dates: end: 202003
  6. KETOPROFEN [Concomitant]
     Active Substance: KETOPROFEN
     Indication: Still^s disease
     Route: 048
     Dates: end: 20200409
  7. COMBIGAN [Concomitant]
     Active Substance: BRIMONIDINE TARTRATE\TIMOLOL MALEATE
     Indication: Glaucoma
     Route: 031
  8. AZOPT [Concomitant]
     Active Substance: BRINZOLAMIDE
     Indication: Glaucoma
     Route: 031

REACTIONS (2)
  - Abortion spontaneous [Recovered/Resolved with Sequelae]
  - Maternal exposure during pregnancy [Unknown]

NARRATIVE: CASE EVENT DATE: 20200912
